FAERS Safety Report 24737498 (Version 1)
Quarter: 2024Q4

REPORT INFORMATION
  Report Type: Spontaneous
  Country: SE (occurrence: SE)
  Receive Date: 20241216
  Receipt Date: 20241216
  Transmission Date: 20250115
  Serious: Yes (Other)
  Sender: ACCORD
  Company Number: None

PATIENT
  Age: 28 Year
  Sex: Female

DRUGS (13)
  1. FLUOXETINE [Suspect]
     Active Substance: FLUOXETINE HYDROCHLORIDE
     Indication: Depression
     Dosage: STRENGTH: 22.4MG, 20MG, 20 MG IN THE MORNING AND 20 MG AT LUNCH.
  2. GUSELKUMAB [Concomitant]
     Active Substance: GUSELKUMAB
     Dosage: STRENGTH: 100 MG, 1 EVERY 8 WEEK, SOLUTION FOR INJECTION IN PRE-FILLED PEN
     Dates: start: 20240424
  3. DROSPIRENONE\ETHINYL ESTRADIOL [Concomitant]
     Active Substance: DROSPIRENONE\ETHINYL ESTRADIOL
     Dosage: STRENGTH: 0.02 MG, 3 MG,
     Dates: start: 20240817
  4. MOMETASONE [Concomitant]
     Active Substance: MOMETASONE
     Dosage: STRENGTH: 1
     Dates: start: 20240424
  5. MELATONIN [Concomitant]
     Active Substance: MELATONIN
     Dosage: STRENGTH: 4 MG, 0.5 - 1 TABLET AT 19:00 AND 1 TABLET AT 21:00
     Dates: start: 20240820
  6. PROPIOMAZINE [Concomitant]
     Active Substance: PROPIOMAZINE
     Dosage: STRENGTH: 34MG , 25 MG, 1-2 TABLETS AT NIGHT
     Dates: start: 20230317
  7. BETAMETHASONE DIPROPIONATE [Concomitant]
     Active Substance: BETAMETHASONE DIPROPIONATE
     Dosage: STRENGTH: 0.5, 0.64, LUBRICATE THE SCALP 2 TIMES/D 2 WEEKS, 1 TIME/DAY 2 WEEKS REPEAT AS REQUIRED
     Dates: start: 20231106
  8. BUSPIRONE [Concomitant]
     Active Substance: BUSPIRONE HYDROCHLORIDE
     Dosage: STRENGTH: 10 MG, 9 MG,
     Dates: start: 20240702
  9. PROPYLESS [Concomitant]
     Dosage: STRENGTH: 200, 1 APPLICATION 2 TIMES DAILY
     Dates: start: 20240531
  10. MINIDERM [Concomitant]
     Dosage: STRENGTH: 20, 200, 1 APPLICATION 2 TIMES DAILY
     Dates: start: 20240424
  11. UREA [Concomitant]
     Active Substance: UREA
     Dosage: STRENGTH: 50, 1 APPLICATION 2 TIMES DAILY
     Dates: start: 20220224
  12. ORUDIS [Concomitant]
     Active Substance: KETOPROFEN
     Dosage: STRENGTH: 200 MG
     Dates: start: 20240725
  13. QUETIAPINE [Concomitant]
     Active Substance: QUETIAPINE
     Dosage: STRENGTH: 25 MG, 1-2 TABLETS AS REQUIRED, MAXIMUM 2 TABLETS PER DAY
     Dates: start: 20230714

REACTIONS (3)
  - Increased appetite [Unknown]
  - Fatigue [Recovered/Resolved]
  - Intermenstrual bleeding [Recovered/Resolved]

NARRATIVE: CASE EVENT DATE: 20241001
